FAERS Safety Report 6084303-3 (Version None)
Quarter: 2009Q1

REPORT INFORMATION
  Report Type: 
  Country: None (occurrence: None)
  Receive Date: 20090217
  Receipt Date: 20090217
  Transmission Date: 20090719
  Serious: Yes (Hospitalization)
  Sender: FDA-Public Use
  Company Number: None

PATIENT
  Sex: Female
  Weight: 51.3 kg

DRUGS (2)
  1. ERLOTINIB, 150MG [Suspect]
     Indication: NON-SMALL CELL LUNG CANCER
     Dosage: 150MG, PO DAILY
     Route: 048
     Dates: start: 20081111, end: 20090213
  2. DASATINIB, 140MG [Suspect]
     Indication: NON-SMALL CELL LUNG CANCER
     Dosage: 140MG PO, DAILY
     Route: 048
     Dates: start: 20081118, end: 20090213

REACTIONS (2)
  - PERICARDIAL EFFUSION [None]
  - PLEURAL EFFUSION [None]
